FAERS Safety Report 4463012-8 (Version None)
Quarter: 2004Q3

REPORT INFORMATION
  Report Type: 
  Country: None (occurrence: None)
  Receive Date: 20040928
  Receipt Date: 20040913
  Transmission Date: 20050211
  Serious: Yes (Death)
  Sender: FDA-Public Use
  Company Number: 2004GB01912

PATIENT
  Age: 87 Year
  Sex: Female

DRUGS (5)
  1. QUETIAPINE [Suspect]
     Indication: DELUSION
     Dosage: 325 MG PO
     Route: 048
     Dates: start: 20030410
  2. TRANYLCYPROMINE [Concomitant]
  3. ASPIRIN [Concomitant]
  4. SENNA [Concomitant]
  5. VISCOTEARS [Concomitant]

REACTIONS (21)
  - ATRIAL FIBRILLATION [None]
  - BLOOD CREATININE INCREASED [None]
  - BLOOD PRESSURE DECREASED [None]
  - CENTRAL VENOUS PRESSURE DECREASED [None]
  - COMA [None]
  - CONVULSION [None]
  - CORONARY ARTERY ATHEROSCLEROSIS [None]
  - CYSTITIS NONINFECTIVE [None]
  - DRUG INEFFECTIVE [None]
  - ELECTROMECHANICAL DISSOCIATION [None]
  - EPISTAXIS [None]
  - HEPATIC CONGESTION [None]
  - MUCOSAL INFLAMMATION [None]
  - MYOCARDIAL FIBROSIS [None]
  - NEUROLEPTIC MALIGNANT SYNDROME [None]
  - PULMONARY OEDEMA [None]
  - RENAL TUBULAR NECROSIS [None]
  - RESPIRATORY FAILURE [None]
  - THERAPY NON-RESPONDER [None]
  - URINE OUTPUT DECREASED [None]
  - VENTRICULAR TACHYCARDIA [None]
